FAERS Safety Report 21088287 (Version 1)
Quarter: 2022Q3

REPORT INFORMATION
  Report Type: Spontaneous
  Country: CN (occurrence: CN)
  Receive Date: 20220715
  Receipt Date: 20220715
  Transmission Date: 20221026
  Serious: Yes (Hospitalization)
  Sender: FDA-Public Use
  Company Number: CN-BAYER-2022A093607

PATIENT
  Age: 39 Year
  Sex: Male
  Weight: 91.8 kg

DRUGS (2)
  1. AVELOX [Suspect]
     Active Substance: MOXIFLOXACIN HYDROCHLORIDE
     Indication: Pneumonia
     Dosage: 0.4 G, QD
     Route: 048
     Dates: start: 20220419, end: 20220421
  2. EUCALYPTOL, LIMONENE AND PINENE [Concomitant]
     Indication: Pneumonia
     Dosage: 0.3 G, TID
     Route: 048
     Dates: start: 20220419, end: 20220425

REACTIONS (6)
  - Erythema multiforme [Recovering/Resolving]
  - Skin infection [Recovering/Resolving]
  - Rash maculo-papular [Recovering/Resolving]
  - Blister [Recovering/Resolving]
  - Blister rupture [Recovering/Resolving]
  - Joint swelling [Recovering/Resolving]

NARRATIVE: CASE EVENT DATE: 20220401
